FAERS Safety Report 17110471 (Version 1)
Quarter: 2019Q4

REPORT INFORMATION
  Report Type: Spontaneous
  Country: SE (occurrence: SE)
  Receive Date: 20191204
  Receipt Date: 20191204
  Transmission Date: 20200122
  Serious: Yes (Hospitalization)
  Sender: FDA-Public Use
  Company Number: SE-PFIZER INC-2019521451

PATIENT
  Age: 23 Year
  Sex: Female

DRUGS (3)
  1. LERGIGAN [PROMETHAZINE HYDROCHLORIDE] [Suspect]
     Active Substance: PROMETHAZINE HYDROCHLORIDE
     Dosage: ^CIRCA 4-5 LERGIGAN^
     Route: 048
     Dates: start: 20180402, end: 20180402
  2. SERTRALINE HCL [Suspect]
     Active Substance: SERTRALINE HYDROCHLORIDE
     Dosage: 350 MG, UNK
     Route: 048
     Dates: start: 20180402, end: 20180402
  3. OXASCAND [Suspect]
     Active Substance: OXAZEPAM
     Dosage: 30 MG, UNK
     Route: 048
     Dates: start: 20180402, end: 20180402

REACTIONS (2)
  - Intentional overdose [Unknown]
  - Intentional self-injury [Unknown]

NARRATIVE: CASE EVENT DATE: 20180402
